FAERS Safety Report 16525579 (Version 1)
Quarter: 2019Q3

REPORT INFORMATION
  Report Type: Spontaneous
  Country: US (occurrence: US)
  Receive Date: 20190703
  Receipt Date: 20190703
  Transmission Date: 20191004
  Serious: No
  Sender: FDA-Public Use
  Company Number: US-SA-2019SA174380

PATIENT
  Age: 78 Year
  Sex: Female

DRUGS (1)
  1. XYZAL ALLERGY 24HR [Suspect]
     Active Substance: LEVOCETIRIZINE DIHYDROCHLORIDE
     Indication: HYPERSENSITIVITY
     Dosage: 5 MG, QD
     Dates: start: 20190531, end: 20190621

REACTIONS (2)
  - Condition aggravated [Unknown]
  - Diplopia [Unknown]

NARRATIVE: CASE EVENT DATE: 20190616
